FAERS Safety Report 8470683-8 (Version None)
Quarter: 2012Q2

REPORT INFORMATION
  Report Type: 
  Country: None (occurrence: None)
  Receive Date: 20120627
  Receipt Date: 20120621
  Transmission Date: 20120825
  Serious: Yes (Death)
  Sender: FDA-Public Use
  Company Number: AU-PFIZER INC-2012150108

PATIENT
  Sex: Female

DRUGS (1)
  1. CRIZOTINIB [Suspect]

REACTIONS (1)
  - PNEUMONIA ASPIRATION [None]
